FAERS Safety Report 5803036-9 (Version None)
Quarter: 2008Q3

REPORT INFORMATION
  Report Type: 
  Country: None (occurrence: None)
  Receive Date: 20080708
  Receipt Date: 20080630
  Transmission Date: 20090109
  Serious: Yes (Hospitalization, Other)
  Sender: FDA-Public Use
  Company Number: GB-JNJFOC-20080700788

PATIENT
  Age: 37 Year
  Sex: Female
  Weight: 82 kg

DRUGS (13)
  1. TOPAMAX [Suspect]
     Indication: MIGRAINE
     Route: 048
  2. CARBAMAZEPINE [Concomitant]
  3. CARBOXYMETHYLCELLULOSE SODIUM [Concomitant]
  4. CITALOPRAM HYDROBROMIDE [Concomitant]
     Indication: DEPRESSION
  5. CODEINE SUL TAB [Concomitant]
     Indication: ANALGESIA
  6. FOLIC ACID [Concomitant]
  7. HYPROMELLOSE [Concomitant]
     Indication: DRY EYE
     Dosage: 0.5% STRENGTH
  8. IMIGRAN [Concomitant]
     Indication: MIGRAINE
  9. METHOTREXATE [Concomitant]
  10. MIRTAZAPINE [Concomitant]
     Indication: DEPRESSION
  11. ACETAMINOPHEN [Concomitant]
     Indication: ANALGESIA
     Route: 048
  12. PREDNISOLONE [Concomitant]
     Indication: SYSTEMIC LUPUS ERYTHEMATOSUS
  13. SUMATRIPTAN SUCCINATE [Concomitant]
     Indication: MIGRAINE
     Route: 048

REACTIONS (1)
  - URINARY TRACT DISORDER [None]
